FAERS Safety Report 5838261-4 (Version None)
Quarter: 2008Q3

REPORT INFORMATION
  Report Type: 
  Country: None (occurrence: None)
  Receive Date: 20080806
  Receipt Date: 20080724
  Transmission Date: 20090109
  Serious: Yes (Other)
  Sender: FDA-Public Use
  Company Number: 2008-178594-NL

PATIENT
  Age: 24 Year
  Sex: Female

DRUGS (1)
  1. IMPLANON [Suspect]
     Indication: CONTRACEPTION
     Dosage: SUBDERMAL
     Route: 059
     Dates: start: 20080114, end: 20080603

REACTIONS (4)
  - ACNE [None]
  - CONDITION AGGRAVATED [None]
  - HAEMORRHAGE [None]
  - PANCREATITIS [None]
